FAERS Safety Report 6347114-7 (Version None)
Quarter: 2009Q3

REPORT INFORMATION
  Report Type: 
  Country: None (occurrence: None)
  Receive Date: 20090910
  Receipt Date: 20090830
  Transmission Date: 20100115
  Serious: Yes (Other)
  Sender: FDA-Public Use
  Company Number: BE-PFIZER INC-2009262973

PATIENT
  Age: 65 Year

DRUGS (1)
  1. DALACIN [Suspect]
     Indication: GINGIVITIS
     Dosage: UNK
     Route: 048
     Dates: start: 20090801

REACTIONS (5)
  - DEAFNESS [None]
  - NAUSEA [None]
  - PYREXIA [None]
  - TINNITUS [None]
  - TOOTH EXTRACTION [None]
